FAERS Safety Report 9636252 (Version 1)
Quarter: 2013Q4

REPORT INFORMATION
  Report Type: Spontaneous
  Country: US (occurrence: US)
  Receive Date: 20131021
  Receipt Date: 20131021
  Transmission Date: 20140711
  Serious: No
  Sender: FDA-Public Use
  Company Number: US-MYLANLABS-2013S1006010

PATIENT
  Age: 65 Year
  Sex: Female
  Weight: 60.78 kg

DRUGS (1)
  1. DICYCLOMINE HYDROCHLORIDE CAPSULE, USP [Suspect]
     Indication: IRRITABLE BOWEL SYNDROME
     Route: 048
     Dates: start: 20130312

REACTIONS (2)
  - Abdominal pain upper [Not Recovered/Not Resolved]
  - Reaction to drug excipients [Not Recovered/Not Resolved]
